FAERS Safety Report 10073388 (Version 1)
Quarter: 2014Q2

REPORT INFORMATION
  Report Type: Report from Study
  Country: US (occurrence: US)
  Receive Date: 20140411
  Receipt Date: 20140411
  Transmission Date: 20141212
  Serious: Yes (Other)
  Sender: FDA-Public Use
  Company Number: US-ABBVIE-14P-163-1220434-00

PATIENT
  Age: 32 Year
  Sex: Female

DRUGS (2)
  1. KALETRA [Suspect]
     Indication: HIV INFECTION
     Route: 048
     Dates: start: 20140120
  2. TRUVADA [Concomitant]
     Indication: HIV INFECTION
     Dosage: NOT TAKING AT CONCEPTION
     Route: 048
     Dates: start: 20140120

REACTIONS (1)
  - Abortion spontaneous [Unknown]
